FAERS Safety Report 5122492-5 (Version None)
Quarter: 2006Q4

REPORT INFORMATION
  Report Type: 
  Country: None (occurrence: None)
  Receive Date: 20061004
  Receipt Date: 20060922
  Transmission Date: 20070319
  Serious: Yes (Other)
  Sender: FDA-Public Use
  Company Number: 235688K06USA

PATIENT
  Age: 53 Year
  Sex: Female

DRUGS (4)
  1. REBIF [Suspect]
     Indication: MULTIPLE SCLEROSIS
     Dosage: SEE IMAGE
     Route: 058
     Dates: start: 20050201, end: 20060301
  2. REBIF [Suspect]
     Indication: MULTIPLE SCLEROSIS
     Dosage: SEE IMAGE
     Route: 058
     Dates: start: 20060301, end: 20060815
  3. KLONOPIN [Concomitant]
  4. CELEXA [Concomitant]

REACTIONS (4)
  - DERMATITIS [None]
  - GENE MUTATION [None]
  - HAEMOCHROMATOSIS [None]
  - HEPATIC STEATOSIS [None]
